FAERS Safety Report 9437653 (Version 1)
Quarter: 2013Q3

REPORT INFORMATION
  Report Type: Spontaneous
  Country: US (occurrence: US)
  Receive Date: 20130802
  Receipt Date: 20130802
  Transmission Date: 20140515
  Serious: No
  Sender: FDA-Public Use
  Company Number: US-009507513-1307USA017270

PATIENT
  Sex: Female

DRUGS (1)
  1. NEXPLANON [Suspect]
     Dosage: UNK
     Route: 059
     Dates: start: 20130619

REACTIONS (8)
  - Breast pain [Recovered/Resolved]
  - Dyspnoea [Recovered/Resolved]
  - Mood altered [Unknown]
  - Mood swings [Unknown]
  - Feeling abnormal [Unknown]
  - Stress [Unknown]
  - Weight increased [Unknown]
  - Menstruation irregular [Unknown]
